FAERS Safety Report 13258013 (Version 2)
Quarter: 2018Q1

REPORT INFORMATION
  Report Type: Spontaneous
  Country: US (occurrence: US)
  Receive Date: 20170221
  Receipt Date: 20180220
  Transmission Date: 20180508
  Serious: No
  Sender: FDA-Public Use
  Company Number: US-PERRIGO-16US021280

PATIENT
  Sex: Female

DRUGS (1)
  1. KETOCONAZOLE. [Suspect]
     Active Substance: KETOCONAZOLE
     Indication: PRODUCT USED FOR UNKNOWN INDICATION
     Dosage: 1 APPLICATION, SINGLE
     Route: 061
     Dates: start: 20160716, end: 20160716

REACTIONS (6)
  - Application site ulcer [Unknown]
  - Application site paraesthesia [Unknown]
  - Hyperaesthesia [Not Recovered/Not Resolved]
  - Application site pain [Unknown]
  - Chemical burn [Unknown]
  - Migraine [Unknown]

NARRATIVE: CASE EVENT DATE: 2016
